FAERS Safety Report 23910298 (Version 1)
Quarter: 2024Q2

REPORT INFORMATION
  Report Type: Spontaneous
  Country: FR (occurrence: FR)
  Receive Date: 20240528
  Receipt Date: 20240528
  Transmission Date: 20240715
  Serious: Yes (Life-Threatening, Hospitalization)
  Sender: FDA-Public Use
  Company Number: None

PATIENT
  Age: 38 Year
  Sex: Male
  Weight: 90 kg

DRUGS (3)
  1. ACETAMINOPHEN [Suspect]
     Active Substance: ACETAMINOPHEN
     Indication: Intentional overdose
     Dosage: TIME INTERVAL: TOTAL: PARACETAMOL 1G X 5 BOXES OF 8 TABS OR 40 G, MAXIMUM
     Route: 048
     Dates: start: 20231023, end: 20231023
  2. BROMAZEPAM [Suspect]
     Active Substance: BROMAZEPAM
     Indication: Intentional overdose
     Dosage: TIME INTERVAL: TOTAL: BROMAZEPAM 6 MG 1 TO 2 BOXES OF 30 TABS OR 360 MG MAXIMUM
     Route: 048
     Dates: start: 20231023, end: 20231023
  3. IBUPROFEN [Suspect]
     Active Substance: IBUPROFEN
     Indication: Intentional overdose
     Dosage: TIME INTERVAL: TOTAL: IBUPROFEN 400 MG X 5 BOXES OF 10 TABS OR 20 G MAXIMUM
     Route: 048
     Dates: start: 20231023, end: 20231023

REACTIONS (3)
  - Intentional overdose [Recovered/Resolved]
  - Acute hepatic failure [Recovering/Resolving]
  - Metabolic acidosis [Recovered/Resolved]

NARRATIVE: CASE EVENT DATE: 20231023
